FAERS Safety Report 7473739-1 (Version None)
Quarter: 2011Q2

REPORT INFORMATION
  Report Type: 
  Country: None (occurrence: None)
  Receive Date: 20110511
  Receipt Date: 20110502
  Transmission Date: 20111010
  Serious: Yes (Hospitalization)
  Sender: FDA-Public Use
  Company Number: FR-BRISTOL-MYERS SQUIBB COMPANY-15728645

PATIENT
  Age: 54 Year
  Sex: Male
  Weight: 75 kg

DRUGS (10)
  1. FLUCONAZOLE [Concomitant]
     Route: 048
  2. ZOPHREN [Concomitant]
     Indication: NAUSEA
  3. ERBITUX [Suspect]
     Indication: TONSIL CANCER
     Dosage: 2ND COURSE ON 21MAR11,470MG. SOLUTION FOR INJ
     Route: 042
     Dates: start: 20110214
  4. CARBOPLATIN [Suspect]
     Indication: TONSIL CANCER
     Dosage: CARBOPLATIN SANDOZ 10MG/ML,2ND COURSE ON 21MAR11,770MG DOSE
     Route: 042
     Dates: start: 20110221
  5. AMLODIPINE BESYLATE [Concomitant]
     Dosage: TAB
     Route: 048
  6. ATORVASTATIN CALCIUM [Concomitant]
     Dosage: TAB
     Route: 048
  7. METFORMIN HCL [Concomitant]
     Route: 048
  8. COVERSYL [Concomitant]
     Dosage: TAB
     Route: 048
  9. ACETAMINOPHEN [Concomitant]
  10. DIPROSONE [Concomitant]
     Indication: RADIATION SKIN INJURY
     Dosage: OINTMENT
     Route: 061

REACTIONS (6)
  - DYSPHAGIA [None]
  - VOMITING [None]
  - LYMPHOPENIA [None]
  - WEIGHT LOSS POOR [None]
  - ODYNOPHAGIA [None]
  - FOOD INTOLERANCE [None]
